FAERS Safety Report 26080956 (Version 1)
Quarter: 2025Q4

REPORT INFORMATION
  Report Type: Spontaneous
  Country: US (occurrence: US)
  Receive Date: 20251124
  Receipt Date: 20251124
  Transmission Date: 20260118
  Serious: No
  Sender: ALEXION PHARMACEUTICALS
  Company Number: US-AstraZeneca-CH-00995988A

PATIENT

DRUGS (1)
  1. BREZTRI [Suspect]
     Active Substance: BUDESONIDE\FORMOTEROL\GLYCOPYRROLATE
     Dosage: 160 MICROGRAM UNKNOWN FREQUENCY

REACTIONS (7)
  - Bradyphrenia [Unknown]
  - Tongue discolouration [Unknown]
  - Device delivery system issue [Unknown]
  - Product dose omission issue [Unknown]
  - No adverse event [Unknown]
  - No adverse event [Unknown]
  - No adverse event [Unknown]
